FAERS Safety Report 8816374 (Version 1)
Quarter: 2012Q4

REPORT INFORMATION
  Report Type: Spontaneous
  Country: US (occurrence: None)
  Receive Date: 20120928
  Receipt Date: 20120928
  Transmission Date: 20130627
  Serious: Yes (Other)
  Sender: FDA-Public Use
  Company Number: None

PATIENT
  Age: 25 Year
  Sex: Female
  Weight: 56.7 kg

DRUGS (1)
  1. AMPHETAMINE SALTS [Suspect]
     Indication: ADHD
     Dosage: 20 mg 4 times a day po
     Route: 048
     Dates: start: 20120918, end: 20120919

REACTIONS (5)
  - Headache [None]
  - Inadequate analgesia [None]
  - Reaction to drug excipients [None]
  - Product substitution issue [None]
  - Toxicity to various agents [None]
